FAERS Safety Report 6804713-3 (Version None)
Quarter: 2010Q2

REPORT INFORMATION
  Report Type: 
  Country: None (occurrence: None)
  Receive Date: 20100628
  Receipt Date: 20070509
  Transmission Date: 20101027
  Serious: No
  Sender: FDA-Public Use
  Company Number: US-PFIZER INC-2007036940

PATIENT
  Sex: Male
  Weight: 114 kg

DRUGS (4)
  1. GEODON [Suspect]
     Indication: DEPRESSION
     Dates: start: 20050201
  2. LEXAPRO [Suspect]
     Indication: DEPRESSION
     Dates: start: 20050201
  3. ALL OTHER THERAPEUTIC PRODUCTS [Concomitant]
  4. AVODART [Concomitant]

REACTIONS (1)
  - DRUG LEVEL DECREASED [None]
